FAERS Safety Report 7423535-6 (Version None)
Quarter: 2011Q2

REPORT INFORMATION
  Report Type: 
  Country: None (occurrence: None)
  Receive Date: 20110419
  Receipt Date: 20110407
  Transmission Date: 20111010
  Serious: Yes (Hospitalization)
  Sender: FDA-Public Use
  Company Number: PHHY2011US25336

PATIENT
  Sex: Female
  Weight: 43 kg

DRUGS (3)
  1. EXJADE [Suspect]
     Indication: SICKLE CELL ANAEMIA
     Dosage: 750 MG  DAILY
     Route: 048
     Dates: start: 20090921
  2. OXYCODONE HCL [Concomitant]
     Dosage: 30 MG, UNK
     Route: 048
  3. FOLIC ACID [Concomitant]

REACTIONS (4)
  - FATIGUE [None]
  - INFLUENZA [None]
  - CHEST DISCOMFORT [None]
  - PNEUMONIA [None]
